FAERS Safety Report 25145231 (Version 1)
Quarter: 2025Q1

REPORT INFORMATION
  Report Type: Spontaneous
  Country: US (occurrence: None)
  Receive Date: 20250331
  Receipt Date: 20250331
  Transmission Date: 20250409
  Serious: No
  Sender: FDA-CTU
  Company Number: None

PATIENT
  Age: 67 Year
  Sex: Female
  Weight: 78.47 kg

DRUGS (1)
  1. RINVOQ [Suspect]
     Active Substance: UPADACITINIB
     Indication: Laboratory test abnormal
     Dosage: FREQUENCY : DAILY;?
     Route: 048
     Dates: start: 202410

REACTIONS (2)
  - Illness [None]
  - Therapy interrupted [None]
